FAERS Safety Report 4300350-3 (Version None)
Quarter: 2004Q1

REPORT INFORMATION
  Report Type: 
  Country: None (occurrence: None)
  Receive Date: 20040218
  Receipt Date: 20040205
  Transmission Date: 20041129
  Serious: Yes (Other)
  Sender: FDA-Public Use
  Company Number: 2003121910

PATIENT
  Age: 35 Year
  Sex: Female
  Weight: 74.8435 kg

DRUGS (3)
  1. ZOLOFT [Suspect]
     Indication: DEPRESSION
     Dosage: (DAILY) ORAL
     Route: 048
  2. QUETIAPINE FUMARATE (QUETIAPINE FUMARATE) [Suspect]
     Indication: ILL-DEFINED DISORDER
     Dosage: ORAL
     Route: 048
  3. CLONAZEPAM [Concomitant]

REACTIONS (13)
  - ANKLE FRACTURE [None]
  - DEPRESSION [None]
  - DRUG INEFFECTIVE [None]
  - FATIGUE [None]
  - GASTROINTESTINAL INJURY [None]
  - HAEMATOMA [None]
  - LUNG INJURY [None]
  - MALAISE [None]
  - MEMORY IMPAIRMENT [None]
  - PANIC ATTACK [None]
  - ROAD TRAFFIC ACCIDENT [None]
  - SOMNOLENCE [None]
  - SPLENIC INJURY [None]
